FAERS Safety Report 5898291-3 (Version None)
Quarter: 2008Q3

REPORT INFORMATION
  Report Type: 
  Country: None (occurrence: None)
  Receive Date: 20080925
  Receipt Date: 20070822
  Transmission Date: 20090109
  Serious: No
  Sender: FDA-Public Use
  Company Number: A0674696A

PATIENT
  Age: 40 Year
  Sex: Female

DRUGS (4)
  1. WELLBUTRIN XL [Suspect]
     Indication: SEASONAL AFFECTIVE DISORDER
     Dosage: 300MG PER DAY
     Route: 048
  2. SYNTHROID [Concomitant]
  3. ACIPHEX [Concomitant]
  4. BIRTH CONTROL [Concomitant]

REACTIONS (2)
  - DIZZINESS [None]
  - PSYCHOMOTOR HYPERACTIVITY [None]
